FAERS Safety Report 10897882 (Version 1)
Quarter: 2015Q1

REPORT INFORMATION
  Report Type: Not Available
  Country: FR (occurrence: FR)
  Receive Date: 20150309
  Receipt Date: 20150309
  Transmission Date: 20150721
  Serious: Yes (Hospitalization)
  Sender: FDA-Public Use
  Company Number: FR-BEH-2015049284

PATIENT
  Age: 50 Year
  Sex: Male

DRUGS (7)
  1. CLAIRYG [Concomitant]
     Active Substance: HUMAN IMMUNOGLOBULIN G
     Indication: HYPOGAMMAGLOBULINAEMIA
  2. XARELTO [Concomitant]
     Active Substance: RIVAROXABAN
  3. BACTRIM [Concomitant]
     Active Substance: SULFAMETHOXAZOLE\TRIMETHOPRIM
  4. INEXIUM [Concomitant]
     Active Substance: ESOMEPRAZOLE
  5. VALACICLOVIR [Concomitant]
     Active Substance: VALACYCLOVIR HYDROCHLORIDE
  6. HYDROCORTISONE. [Concomitant]
     Active Substance: HYDROCORTISONE
  7. PRIVIGEN [Suspect]
     Active Substance: HUMAN IMMUNOGLOBULIN G
     Indication: HYPOGAMMAGLOBULINAEMIA
     Dosage: 1 CYCLE
     Route: 042
     Dates: start: 20150206

REACTIONS (9)
  - Pyrexia [Unknown]
  - Cough [Unknown]
  - Dyspnoea [Recovering/Resolving]
  - Heart rate irregular [Unknown]
  - Drug hypersensitivity [Recovered/Resolved]
  - Blood pressure systolic increased [Unknown]
  - Atrial fibrillation [Recovered/Resolved]
  - Arrhythmia [Recovered/Resolved]
  - Tremor [Recovering/Resolving]

NARRATIVE: CASE EVENT DATE: 20150206
